FAERS Safety Report 4884338-X (Version None)
Quarter: 2006Q1

REPORT INFORMATION
  Report Type: 
  Country: None (occurrence: None)
  Receive Date: 20060118
  Receipt Date: 20060109
  Transmission Date: 20060701
  Serious: Yes (Hospitalization)
  Sender: FDA-Public Use
  Company Number: AU-ABBOTT-06P-008-0321741-00

PATIENT
  Sex: Male
  Weight: 85 kg

DRUGS (1)
  1. KLACID [Suspect]
     Indication: DRUG USE FOR UNKNOWN INDICATION
     Route: 048
     Dates: start: 20040901, end: 20041211

REACTIONS (13)
  - BALANCE DISORDER [None]
  - BLINDNESS [None]
  - BLINDNESS UNILATERAL [None]
  - COORDINATION ABNORMAL [None]
  - DEPRESSION [None]
  - FATIGUE [None]
  - HEADACHE [None]
  - HYPOAESTHESIA [None]
  - INTRACRANIAL PRESSURE INCREASED [None]
  - PAPILLOEDEMA [None]
  - PARAESTHESIA [None]
  - TONSILLITIS [None]
  - VISION BLURRED [None]
